FAERS Safety Report 9382684 (Version 1)
Quarter: 2013Q3

REPORT INFORMATION
  Report Type: Spontaneous
  Country: FR (occurrence: FR)
  Receive Date: 20130703
  Receipt Date: 20130703
  Transmission Date: 20140515
  Serious: Yes (Hospitalization)
  Sender: FDA-Public Use
  Company Number: FR-GLAXOSMITHKLINE-B0903823A

PATIENT
  Age: 63 Year
  Sex: Male

DRUGS (4)
  1. ZOPHREN [Suspect]
     Indication: PREMEDICATION
     Route: 042
     Dates: start: 20130319, end: 20130319
  2. CORENITEC [Suspect]
     Indication: HYPERTENSION
     Route: 048
     Dates: start: 20130328, end: 20130411
  3. CISPLATINE [Suspect]
     Indication: NEOPLASM MALIGNANT
     Dosage: 100MGM2 CYCLIC
     Route: 042
     Dates: start: 20130319, end: 20130319
  4. EMEND [Suspect]
     Indication: PREMEDICATION
     Route: 048
     Dates: start: 20130319, end: 20130319

REACTIONS (2)
  - Rash maculo-papular [Recovered/Resolved]
  - Purpura [Recovered/Resolved]
